FAERS Safety Report 7121892-1 (Version None)
Quarter: 2010Q4

REPORT INFORMATION
  Report Type: 
  Country: None (occurrence: None)
  Receive Date: 20101124
  Receipt Date: 20101116
  Transmission Date: 20110411
  Serious: Yes (Other)
  Sender: FDA-Public Use
  Company Number: BR-ROCHE-743476

PATIENT
  Age: 23 Year
  Sex: Male

DRUGS (1)
  1. FLANAX [Suspect]
     Dosage: DAILY DOSE
     Route: 065

REACTIONS (1)
  - CEREBROVASCULAR ACCIDENT [None]
